FAERS Safety Report 13183273 (Version 8)
Quarter: 2017Q3

REPORT INFORMATION
  Report Type: Spontaneous
  Country: US (occurrence: US)
  Receive Date: 20170203
  Receipt Date: 20170912
  Transmission Date: 20171127
  Serious: Yes (Hospitalization, Other)
  Sender: FDA-Public Use
  Company Number: US-CLOVIS ONCOLOGY-CLO-2017-000013

PATIENT
  Age: 52 Year
  Sex: Female

DRUGS (10)
  1. AMBIEN [Concomitant]
     Indication: INSOMNIA
     Dosage: 5 MG, HS, PRN
     Route: 048
     Dates: start: 20130711
  2. CITALOPRAM [Concomitant]
     Active Substance: CITALOPRAM HYDROBROMIDE
     Indication: PRODUCT USED FOR UNKNOWN INDICATION
     Dosage: 20 MG, QD
     Route: 048
  3. RUBRACA [Suspect]
     Active Substance: RUCAPARIB CAMSYLATE
     Indication: GENE MUTATION
     Dosage: UNK
     Dates: start: 20170116
  4. RUBRACA [Suspect]
     Active Substance: RUCAPARIB CAMSYLATE
     Dosage: UNK
     Dates: start: 20170623
  5. RUBRACA [Suspect]
     Active Substance: RUCAPARIB CAMSYLATE
     Dosage: UNK
     Dates: start: 2017
  6. NEXIUM [Concomitant]
     Indication: PRODUCT USED FOR UNKNOWN INDICATION
     Dosage: 40 MG, QD
     Route: 048
  7. RUBRACA [Suspect]
     Active Substance: RUCAPARIB CAMSYLATE
     Indication: OVARIAN CANCER
     Dosage: 600 MG, BID
     Route: 048
     Dates: start: 20170114, end: 2017
  8. NORCO [Concomitant]
     Indication: PAIN
     Dosage: 10-325MG, Q4H, PRN
     Route: 048
  9. CALCIUM WITH VITAMIN D [Concomitant]
     Active Substance: CALCIUM\VITAMIN D
     Indication: PRODUCT USED FOR UNKNOWN INDICATION
     Dosage: 600MG-100, BID
     Route: 048
  10. ALPRAZOLAM [Concomitant]
     Indication: ANXIETY
     Dosage: 0.5 MG, BID, PRN
     Route: 048

REACTIONS (12)
  - Hepatic lesion [Not Recovered/Not Resolved]
  - Vomiting [Recovering/Resolving]
  - Influenza [Recovered/Resolved]
  - Wound infection [Recovered/Resolved]
  - Colostomy closure [Unknown]
  - Dysgeusia [Unknown]
  - Nasopharyngitis [Unknown]
  - Nausea [Recovering/Resolving]
  - Therapy cessation [Unknown]
  - Pain [Recovered/Resolved]
  - Fatigue [Recovered/Resolved]
  - Drug dose omission [Unknown]

NARRATIVE: CASE EVENT DATE: 2017
